FAERS Safety Report 21579610 (Version 1)
Quarter: 2022Q4

REPORT INFORMATION
  Report Type: Report from Study
  Country: US (occurrence: US)
  Receive Date: 20221110
  Receipt Date: 20221110
  Transmission Date: 20230113
  Serious: Yes (Death)
  Sender: FDA-Public Use
  Company Number: US-ABBVIE-4194206

PATIENT
  Age: 82 Year

DRUGS (1)
  1. SYNTHROID [Suspect]
     Active Substance: LEVOTHYROXINE SODIUM
     Indication: Hypothyroidism
     Route: 048
     Dates: start: 201702

REACTIONS (2)
  - Brain neoplasm [Fatal]
  - Cardiac failure [Fatal]

NARRATIVE: CASE EVENT DATE: 20221022
